FAERS Safety Report 6057288-3 (Version None)
Quarter: 2009Q1

REPORT INFORMATION
  Report Type: 
  Country: None (occurrence: None)
  Receive Date: 20090129
  Receipt Date: 20080806
  Transmission Date: 20090719
  Serious: No
  Sender: FDA-Public Use
  Company Number: A0741370A

PATIENT
  Age: 25 Year
  Sex: Male

DRUGS (3)
  1. WELLBUTRIN [Suspect]
     Indication: ANXIETY
     Dosage: 75MG PER DAY
     Route: 048
     Dates: start: 20080805
  2. KLONOPIN [Concomitant]
  3. TRAZODONE HCL [Concomitant]

REACTIONS (3)
  - ANXIETY [None]
  - DYSPHAGIA [None]
  - FEELING ABNORMAL [None]
